FAERS Safety Report 5809855-7 (Version None)
Quarter: 2008Q3

REPORT INFORMATION
  Report Type: 
  Country: None (occurrence: None)
  Receive Date: 20080714
  Receipt Date: 20080714
  Transmission Date: 20090109
  Serious: No
  Sender: FDA-Public Use
  Company Number: None

PATIENT
  Age: 82 Year
  Sex: Male
  Weight: 66.2252 kg

DRUGS (1)
  1. LEVAQUIN [Suspect]
     Dosage: 250MG ONCE A DAY PO
     Route: 048
     Dates: start: 20060414

REACTIONS (6)
  - ACTIVITIES OF DAILY LIVING IMPAIRED [None]
  - BALANCE DISORDER [None]
  - GAIT DISTURBANCE [None]
  - TENDON PAIN [None]
  - TENDON RUPTURE [None]
  - WHEELCHAIR USER [None]
